FAERS Safety Report 23313854 (Version 2)
Quarter: 2023Q4

REPORT INFORMATION
  Report Type: Spontaneous
  Country: US (occurrence: US)
  Receive Date: 20231219
  Receipt Date: 20231228
  Transmission Date: 20240109
  Serious: Yes (Hospitalization, Other)
  Sender: FDA-Public Use
  Company Number: US-INDIVIOR EUROPE LIMITED-INDV-142300-2023

PATIENT
  Age: 24 Year
  Sex: Female

DRUGS (2)
  1. BUPRENORPHINE [Suspect]
     Active Substance: BUPRENORPHINE
     Indication: Drug use disorder
     Dosage: 100 MILLIGRAM, QMO
     Route: 058
  2. BUPRENORPHINE [Suspect]
     Active Substance: BUPRENORPHINE

REACTIONS (2)
  - Fungal endocarditis [Unknown]
  - Procedural pain [Recovered/Resolved]
